FAERS Safety Report 15581777 (Version 1)
Quarter: 2018Q4

REPORT INFORMATION
  Report Type: Spontaneous
  Country: US (occurrence: US)
  Receive Date: 20181102
  Receipt Date: 20181102
  Transmission Date: 20190205
  Serious: No
  Sender: FDA-Public Use
  Company Number: US-RADIUS HEALTH INC.-2018US001818

PATIENT
  Sex: Female

DRUGS (3)
  1. TYMLOS [Suspect]
     Active Substance: ABALOPARATIDE
     Indication: OSTEOPOROSIS POSTMENOPAUSAL
     Dosage: 80 MCG DAILY
     Route: 058
     Dates: start: 20180511
  2. TYMLOS [Suspect]
     Active Substance: ABALOPARATIDE
     Dosage: 80 MCG 3 DAYS A WEEK
     Route: 058
  3. TYMLOS [Suspect]
     Active Substance: ABALOPARATIDE
     Dosage: 80 MCG QOD
     Route: 058

REACTIONS (8)
  - Back pain [Unknown]
  - Irritability [Unknown]
  - Oedema peripheral [Unknown]
  - Nausea [Unknown]
  - Fatigue [Unknown]
  - Drug hypersensitivity [Unknown]
  - Off label use [Unknown]
  - Anger [Unknown]
